FAERS Safety Report 7005465-7 (Version None)
Quarter: 2010Q3

REPORT INFORMATION
  Report Type: 
  Country: None (occurrence: None)
  Receive Date: 20100921
  Receipt Date: 20100910
  Transmission Date: 20110219
  Serious: Yes (Hospitalization)
  Sender: FDA-Public Use
  Company Number: JP-ROCHE-727063

PATIENT
  Age: 67 Year
  Sex: Male

DRUGS (5)
  1. BEVACIZUMAB [Suspect]
     Indication: LARGE INTESTINE CARCINOMA
     Route: 041
  2. ELPLAT [Concomitant]
     Indication: LARGE INTESTINE CARCINOMA
     Dosage: NOTE: DOSAGE IS UNCERTAIN
     Route: 041
  3. LEUCOVORIN CALCIUM [Concomitant]
     Indication: LARGE INTESTINE CARCINOMA
     Dosage: NOTE: DOSAGE IS UNCERTAIN
     Route: 041
  4. FLUOROURACIL [Concomitant]
     Indication: LARGE INTESTINE CARCINOMA
     Dosage: ROUTE: INTRAVENOUS DRIP. NOTE: DOSAGE IS UNCERTAIN
     Route: 042
  5. FLUOROURACIL [Concomitant]
     Dosage: ROUTE: INTRAVENOUS BOLUS. NOTE: DOSAGE IS UNCERTAIN
     Route: 042

REACTIONS (2)
  - ALTERED STATE OF CONSCIOUSNESS [None]
  - HYPERAMMONAEMIA [None]
